FAERS Safety Report 7995334-8 (Version None)
Quarter: 2011Q4

REPORT INFORMATION
  Report Type: 
  Country: None (occurrence: None)
  Receive Date: 20111220
  Receipt Date: 20111219
  Transmission Date: 20120403
  Serious: Yes (Hospitalization)
  Sender: FDA-Public Use
  Company Number: IT-BAYER-2011-121832

PATIENT
  Age: 84 Year
  Sex: Female

DRUGS (2)
  1. ASPIRIN [Suspect]
     Indication: ISCHAEMIC STROKE
     Dosage: 100 MG, QD
     Route: 048
     Dates: start: 20090101, end: 20111015
  2. AIRTAL [Suspect]
     Indication: ARTHRALGIA
     Dosage: DAILY DOSE 200 MG
     Route: 048
     Dates: start: 20111010, end: 20111015

REACTIONS (1)
  - MELAENA [None]
